FAERS Safety Report 23800911 (Version 1)
Quarter: 2024Q2

REPORT INFORMATION
  Report Type: Spontaneous
  Country: US (occurrence: None)
  Receive Date: 20240429
  Receipt Date: 20240429
  Transmission Date: 20240715
  Serious: Yes (Other)
  Sender: FDA-Public Use
  Company Number: None

PATIENT
  Age: 72 Year
  Sex: Female
  Weight: 88.2 kg

DRUGS (1)
  1. LEQEMBI [Suspect]
     Active Substance: LECANEMAB-IRMB
     Indication: Dementia Alzheimer^s type
     Dosage: 10 MG/KG  ONCE EVERY TWO WEEKS INTRAVENOUS DRIP??TIME OF THE EVENT AND DATE: ?FOCAL FOCUSED ULTRASOU
     Route: 041
     Dates: start: 20240326, end: 20240326

REACTIONS (6)
  - Effusion [None]
  - Infusion related reaction [None]
  - Brain oedema [None]
  - Cerebral sulcal prominence [None]
  - Blood brain barrier defect [None]
  - Device use issue [None]

NARRATIVE: CASE EVENT DATE: 20240328
